FAERS Safety Report 15395636 (Version 4)
Quarter: 2018Q4

REPORT INFORMATION
  Report Type: Spontaneous
  Country: DE (occurrence: DE)
  Receive Date: 20180918
  Receipt Date: 20181027
  Transmission Date: 20190204
  Serious: Yes (Other)
  Sender: FDA-Public Use
  Company Number: DE-JNJFOC-20180904630

PATIENT
  Sex: Male

DRUGS (3)
  1. REGAINE MANNER SCHAUM [Suspect]
     Active Substance: MINOXIDIL
     Route: 061
  2. REGAINE MANNER SCHAUM [Suspect]
     Active Substance: MINOXIDIL
     Indication: PRODUCT USED FOR UNKNOWN INDICATION
     Route: 061
  3. ATORVASTATIN [Concomitant]
     Active Substance: ATORVASTATIN
     Indication: PRODUCT USED FOR UNKNOWN INDICATION
     Route: 065

REACTIONS (3)
  - Hypersensitivity [Recovered/Resolved]
  - Product administered to patient of inappropriate age [Unknown]
  - Throat tightness [Recovered/Resolved]
